FAERS Safety Report 9223141 (Version 1)
Quarter: 2013Q1

REPORT INFORMATION
  Report Type: Spontaneous
  Country: US (occurrence: None)
  Receive Date: 20120914
  Receipt Date: 20120914
  Transmission Date: 20140127
  Serious: Yes (Other)
  Sender: FDA-Public Use
  Company Number: JPI-P-016887

PATIENT
  Age: 44 Year
  Sex: Female
  Weight: 96.16 kg

DRUGS (6)
  1. XYREM (500 MILLIGRAM/MILLILITERS, SOLUTION) (SODIUM OXYBATE) [Suspect]
     Indication: NARCOLEPSY
     Route: 048
     Dates: start: 201107, end: 2011
  2. METHYLPHENIDATE [Concomitant]
  3. PREGABALIN [Concomitant]
  4. GABAPENTIN [Concomitant]
  5. IRON [Concomitant]
  6. DULOXETINE HYDROCHLORIDE [Concomitant]

REACTIONS (2)
  - Hypertension [None]
  - Electrocardiogram abnormal [None]
